FAERS Safety Report 18761540 (Version 1)
Quarter: 2021Q1

REPORT INFORMATION
  Report Type: Other
  Country: CA (occurrence: CA)
  Receive Date: 20210120
  Receipt Date: 20210120
  Transmission Date: 20210419
  Serious: Yes (Death, Other)
  Sender: FDA-Public Use
  Company Number: CA-APOTEX-2021AP001280

PATIENT
  Sex: Male
  Weight: 90 kg

DRUGS (2)
  1. APO?OMEPRAZOLE [Suspect]
     Active Substance: OMEPRAZOLE
     Indication: DYSPEPSIA
  2. APO?OMEPRAZOLE [Suspect]
     Active Substance: OMEPRAZOLE
     Indication: GASTROINTESTINAL ULCER
     Dosage: UNK
     Route: 065

REACTIONS (4)
  - Fistula [Fatal]
  - Biliary obstruction [Fatal]
  - Jaundice [Fatal]
  - Blood bilirubin increased [Fatal]
